FAERS Safety Report 10501889 (Version 1)
Quarter: 2014Q4

REPORT INFORMATION
  Report Type: Spontaneous
  Country: FR (occurrence: FR)
  Receive Date: 20141007
  Receipt Date: 20141007
  Transmission Date: 20150528
  Serious: Yes (Hospitalization)
  Sender: FDA-Public Use
  Company Number: FR-SA-2014SA133971

PATIENT
  Age: 34 Year
  Sex: Male

DRUGS (4)
  1. AUGMENTIN [Suspect]
     Active Substance: AMOXICILLIN\CLAVULANATE POTASSIUM
     Route: 065
     Dates: start: 20140430, end: 20140506
  2. KEPPRA [Concomitant]
     Active Substance: LEVETIRACETAM
  3. LOVENOX [Suspect]
     Active Substance: ENOXAPARIN SODIUM
     Dosage: STRENGTH 0.4 ML
     Route: 065
     Dates: start: 20140402, end: 20140506
  4. URBANYL [Concomitant]
     Active Substance: CLOBAZAM

REACTIONS (2)
  - Hepatitis [Recovered/Resolved]
  - Thrombocytopenia [Recovered/Resolved]

NARRATIVE: CASE EVENT DATE: 20140506
